FAERS Safety Report 10961093 (Version 1)
Quarter: 2015Q1

REPORT INFORMATION
  Report Type: Spontaneous
  Country: US (occurrence: None)
  Receive Date: 20150326
  Receipt Date: 20150326
  Transmission Date: 20150721
  Serious: Yes (Hospitalization)
  Sender: FDA-Public Use
  Company Number: None

PATIENT
  Age: 41 Year
  Sex: Female
  Weight: 80.9 kg

DRUGS (9)
  1. OMPERAZOLE [Concomitant]
     Active Substance: OMEPRAZOLE
  2. ZOMETA [Concomitant]
     Active Substance: ZOLEDRONIC ACID
  3. VELIPARIB [Suspect]
     Active Substance: VELIPARIB
     Indication: BREAST CANCER METASTATIC
     Route: 048
     Dates: start: 20150212, end: 20150312
  4. COMPAZINE [Concomitant]
     Active Substance: PROCHLORPERAZINE MALEATE
  5. COLACE [Concomitant]
     Active Substance: DOCUSATE SODIUM
  6. TRAZODONE [Concomitant]
     Active Substance: TRAZODONE HYDROCHLORIDE
  7. FENTANYL. [Concomitant]
     Active Substance: FENTANYL
  8. OXYCODONE [Suspect]
     Active Substance: OXYCODONE
  9. ZOFRAN [Concomitant]
     Active Substance: ONDANSETRON HYDROCHLORIDE

REACTIONS (6)
  - Vomiting [None]
  - Nausea [None]
  - Hyponatraemia [None]
  - Blood creatinine increased [None]
  - Back pain [None]
  - Flank pain [None]

NARRATIVE: CASE EVENT DATE: 20150313
